FAERS Safety Report 4970253-X (Version None)
Quarter: 2006Q2

REPORT INFORMATION
  Report Type: 
  Country: None (occurrence: None)
  Receive Date: 20060412
  Receipt Date: 20060404
  Transmission Date: 20061013
  Serious: Yes (Other)
  Sender: FDA-Public Use
  Company Number: PHRM2006FR01263

PATIENT
  Age: 29 Year
  Sex: Female

DRUGS (4)
  1. DITROPAN [Suspect]
     Indication: PYRAMIDAL TRACT SYNDROME
     Dosage: 2.5 MG/DAY
     Route: 048
     Dates: start: 20030101
  2. EFFEXOR [Suspect]
     Indication: PYRAMIDAL TRACT SYNDROME
     Dosage: 37.5 MG/DAY
     Route: 048
     Dates: start: 20030101
  3. RILUTEK [Suspect]
     Indication: PYRAMIDAL TRACT SYNDROME
     Dosage: 75 MG/DAY
     Route: 048
     Dates: start: 20030101
  4. LIORESAL [Suspect]
     Indication: PYRAMIDAL TRACT SYNDROME
     Dosage: 10 MG/DAY
     Route: 048
     Dates: start: 20030101

REACTIONS (5)
  - CONGENITAL CEREBRAL CYST [None]
  - DRUG EXPOSURE DURING PREGNANCY [None]
  - EXOMPHALOS [None]
  - INTRA-UTERINE DEATH [None]
  - TALIPES [None]
